FAERS Safety Report 4399547-6 (Version None)
Quarter: 2004Q3

REPORT INFORMATION
  Report Type: 
  Country: None (occurrence: None)
  Receive Date: 20040716
  Receipt Date: 20040618
  Transmission Date: 20050211
  Serious: Yes (Hospitalization)
  Sender: FDA-Public Use
  Company Number: JP-GLAXOSMITHKLINE-B0336493A

PATIENT
  Age: 65 Year
  Sex: Male
  Weight: 62 kg

DRUGS (27)
  1. ALKERAN [Suspect]
     Indication: STEM CELL TRANSPLANT
     Dosage: 70MG PER DAY
     Route: 042
     Dates: start: 20030930, end: 20031001
  2. GRAN [Concomitant]
     Dates: start: 20031008, end: 20031018
  3. FOSMICIN S [Concomitant]
     Route: 042
     Dates: start: 20030926, end: 20031004
  4. ZOVIRAX [Concomitant]
     Route: 042
     Dates: start: 20030926, end: 20031024
  5. DIFLUCAN [Concomitant]
     Route: 042
     Dates: start: 20030926, end: 20031111
  6. GASTER [Concomitant]
     Dates: start: 20030930, end: 20031006
  7. GASTER [Concomitant]
     Dates: start: 20031102, end: 20031111
  8. GASTER [Concomitant]
     Dates: start: 20031221, end: 20031230
  9. GAMIMUNE N 5% [Concomitant]
     Route: 042
     Dates: start: 20031002, end: 20031002
  10. GAMIMUNE N 5% [Concomitant]
     Route: 042
     Dates: start: 20031109, end: 20031109
  11. PANTOL [Concomitant]
     Dates: start: 20031005, end: 20031006
  12. PANTOL [Concomitant]
     Dates: start: 20031101, end: 20040122
  13. FIRSTCIN [Concomitant]
     Route: 042
     Dates: start: 20031101, end: 20031107
  14. FIRSTCIN [Concomitant]
     Route: 042
     Dates: start: 20031127, end: 20031203
  15. SOLU-MEDROL [Concomitant]
     Route: 042
     Dates: start: 20031107, end: 20031107
  16. NEOPHYLLIN INJECTION [Concomitant]
     Route: 042
     Dates: start: 20031107, end: 20031107
  17. PAZULFLOXACIN MESILATE [Concomitant]
     Route: 042
     Dates: start: 20031107, end: 20031125
  18. DINOPROST [Concomitant]
     Route: 042
     Dates: start: 20031106, end: 20031107
  19. ADENOSINE [Concomitant]
     Route: 042
     Dates: start: 20031111, end: 20031125
  20. OMEPRAL [Concomitant]
     Route: 042
     Dates: start: 20031211, end: 20031220
  21. KANAMYCIN [Concomitant]
     Route: 048
     Dates: start: 20030930, end: 20031024
  22. SELBEX [Concomitant]
     Route: 048
     Dates: start: 20030930
  23. GASMOTIN [Concomitant]
     Route: 048
     Dates: start: 20030930, end: 20031024
  24. LASIX [Concomitant]
     Route: 048
     Dates: start: 20030930
  25. PARIET [Concomitant]
     Route: 048
     Dates: start: 20031014, end: 20031021
  26. LANSOPRAZOLE [Concomitant]
     Route: 048
     Dates: start: 20031111, end: 20031216
  27. DIFLUCAN [Concomitant]
     Route: 048
     Dates: start: 20031112

REACTIONS (11)
  - ABDOMINAL DISTENSION [None]
  - ABDOMINAL PAIN [None]
  - CARDIAC ARREST [None]
  - CARDIAC FAILURE [None]
  - DYSPNOEA [None]
  - GASTROINTESTINAL HAEMORRHAGE [None]
  - ILEUS PARALYTIC [None]
  - PNEUMONIA [None]
  - PULMONARY OEDEMA [None]
  - PYREXIA [None]
  - WHEEZING [None]
